FAERS Safety Report 23998901 (Version 3)
Quarter: 2024Q3

REPORT INFORMATION
  Report Type: Spontaneous
  Country: US (occurrence: US)
  Receive Date: 20240621
  Receipt Date: 20240725
  Transmission Date: 20241017
  Serious: No
  Sender: PFIZER
  Company Number: US-PFIZER INC-202400196868

PATIENT
  Age: 14 Year
  Sex: Male

DRUGS (2)
  1. GENOTROPIN [Suspect]
     Active Substance: SOMATROPIN
     Dosage: ALTERNATE 1.8MG AND 2.0MG EVERY OTHER DAY
     Route: 058
     Dates: start: 20240618
  2. GENOTROPIN [Suspect]
     Active Substance: SOMATROPIN
     Dosage: ALTERNATE 1.8MG AND 2.0MG EVERY OTHER DAY
     Route: 058
     Dates: start: 20240618

REACTIONS (1)
  - Injection site coldness [Unknown]

NARRATIVE: CASE EVENT DATE: 20240618
